FAERS Safety Report 9222983 (Version 1)
Quarter: 2013Q2

REPORT INFORMATION
  Report Type: Report from Study
  Country: AU (occurrence: AU)
  Receive Date: 20130410
  Receipt Date: 20130410
  Transmission Date: 20140414
  Serious: Yes (Other)
  Sender: FDA-Public Use
  Company Number: AU-ROCHE-1210529

PATIENT
  Sex: 0

DRUGS (6)
  1. ALTEPLASE [Suspect]
     Indication: RETINAL HAEMORRHAGE
     Dosage: 30 MCG TO 100 MCG
     Route: 031
  2. EXPANSILE GAS [Suspect]
     Indication: RETINAL HAEMORRHAGE
     Dosage: 0.3 TO 0.4 OF PURE GAS
     Route: 031
  3. CHLORAMPHENICOL [Concomitant]
  4. LIDOCAINE [Concomitant]
     Indication: ANAESTHESIA
  5. BETADINE [Concomitant]
     Route: 050
  6. OXYBUPROCAINE HCL [Concomitant]
     Route: 050

REACTIONS (2)
  - Vitreous haemorrhage [Unknown]
  - Retinal detachment [Unknown]
